FAERS Safety Report 6098177-8 (Version None)
Quarter: 2009Q1

REPORT INFORMATION
  Report Type: 
  Country: None (occurrence: None)
  Receive Date: 20090227
  Receipt Date: 20090220
  Transmission Date: 20090719
  Serious: Yes (Hospitalization)
  Sender: FDA-Public Use
  Company Number: PHHY2008DE28466

PATIENT
  Sex: Male

DRUGS (3)
  1. EXELON [Suspect]
     Indication: DEMENTIA ALZHEIMER'S TYPE
     Dosage: 2X 1.5 MG
     Route: 048
     Dates: start: 20081029, end: 20081105
  2. EXELON [Suspect]
     Dosage: 2X3 MG
     Route: 048
     Dates: start: 20081106
  3. MARCUMAR [Concomitant]
     Dosage: UNK

REACTIONS (2)
  - AMAUROSIS [None]
  - BLINDNESS [None]
